FAERS Safety Report 9123575 (Version 2)
Quarter: 2013Q1

REPORT INFORMATION
  Report Type: Report from Study
  Country: US (occurrence: US)
  Receive Date: 20130115
  Receipt Date: 20130314
  Transmission Date: 20140127
  Serious: Yes (Other)
  Sender: FDA-Public Use
  Company Number: US-ABBOTT-12P-163-1021710-00

PATIENT
  Age: 39 Year
  Sex: Female

DRUGS (5)
  1. KALETRA [Suspect]
     Indication: ANTIRETROVIRAL THERAPY
     Dosage: NOT TAKING MEDICINE AT CONCEPTION
     Route: 048
     Dates: start: 20120924
  2. COMBIVIR [Suspect]
     Indication: ANTIRETROVIRAL THERAPY
     Dosage: NOT TAKING MEDICINE AT CONCEPTION
     Route: 048
     Dates: start: 20120924
  3. ISENTRESS [Suspect]
     Indication: ANTIRETROVIRAL THERAPY
     Dosage: NOT TAKING MEDICINE AT CONCEPTION
     Route: 048
     Dates: start: 20120924
  4. RETROVIR [Suspect]
     Indication: ANTIRETROVIRAL THERAPY
     Dosage: NOT TAKING MEDICINE AT CONCEPTION
     Route: 042
     Dates: start: 20121121, end: 20121121
  5. RETROVIR [Suspect]
     Dosage: NOT TAKING MEDICINE AT CONCEPTION
     Route: 042
     Dates: start: 20121121, end: 20121121

REACTIONS (2)
  - Cytomegalovirus infection [Unknown]
  - Gestational diabetes [Unknown]
